FAERS Safety Report 6065948-3 (Version None)
Quarter: 2009Q1

REPORT INFORMATION
  Report Type: 
  Country: None (occurrence: None)
  Receive Date: 20090205
  Receipt Date: 20090202
  Transmission Date: 20090719
  Serious: Yes (Other)
  Sender: FDA-Public Use
  Company Number: ES-BRISTOL-MYERS SQUIBB COMPANY-14489785

PATIENT
  Age: 31 Year
  Sex: Male

DRUGS (3)
  1. DIDANOSINE [Suspect]
     Indication: HIV INFECTION
     Dates: start: 20010112, end: 20011107
  2. ZIDOVUDINE [Suspect]
     Indication: HIV INFECTION
     Dates: start: 20010112, end: 20011107
  3. NEVIRAPINE [Suspect]
     Indication: HIV INFECTION
     Dates: start: 20010112, end: 20011107

REACTIONS (3)
  - BLOOD BILIRUBIN INCREASED [None]
  - DRUG RESISTANCE [None]
  - TRANSAMINASES INCREASED [None]
